FAERS Safety Report 16623900 (Version 1)
Quarter: 2019Q3

REPORT INFORMATION
  Report Type: Spontaneous
  Country: DE (occurrence: DE)
  Receive Date: 20190724
  Receipt Date: 20190724
  Transmission Date: 20191004
  Serious: Yes (Life-Threatening, Hospitalization, Other)
  Sender: FDA-Public Use
  Company Number: DE-TEVA-2019-DE-1079806

PATIENT
  Age: 68 Year
  Sex: Male
  Weight: 120 kg

DRUGS (16)
  1. PREGABALIN BETA 50MG [Concomitant]
     Dosage: 50 MG, 1-0-1-0, TABLET
     Route: 048
  2. PANTOZOL [Concomitant]
     Active Substance: PANTOPRAZOLE SODIUM
     Dosage: 40 MG, 1-0-0-0, TABLET
     Route: 048
  3. PREDNISOLON [Concomitant]
     Active Substance: PREDNISOLONE
     Dosage: 5 MG, 1-0-1-0, TABLET
     Route: 048
  4. MOXONIDIN [Concomitant]
     Active Substance: MOXONIDINE
     Dosage: 0.2 MG, 1-0-0-0, TABLET
     Route: 048
  5. CLEXANE [Concomitant]
     Active Substance: ENOXAPARIN SODIUM
     Dosage: 0.4 ML, 1-0-1-0, SOLUTION FOR INJECTION / INFUSION
     Route: 058
  6. TAMSULOSIN [Concomitant]
     Active Substance: TAMSULOSIN
     Dosage: 0.4 MG, 1-0-0-0, TABLET
     Route: 048
  7. ASPIRIN. [Suspect]
     Active Substance: ASPIRIN
     Dosage: 100 MG, 1-0-0-0, TABLET
     Route: 048
  8. ZYTIGA [Concomitant]
     Active Substance: ABIRATERONE ACETATE
     Dosage: 250 MG, 4-0-0-0, TABLET
     Route: 048
  9. MOVICOL [Concomitant]
     Active Substance: POLYETHYLENE GLYCOL 3350\POTASSIUM CHLORIDE\SODIUM BICARBONATE\SODIUM CHLORIDE
     Dosage: 13.125 | 0.35 | 0.18 | 0.05 G, 0-1-0-0, BAG
     Route: 048
  10. PALLADON 2,6 MG [Concomitant]
     Dosage: 2.6 MG, NEED, TABLET
     Route: 048
  11. NOVAMINSULFON [Concomitant]
     Active Substance: METAMIZOLE
     Dosage: 40 GTT, 1-1-1-1, TROPFEN
     Route: 048
  12. PALLADON RETARD 24MG [Concomitant]
     Dosage: 24 MG, 1-0-1-0, RETARD-TABLET
     Route: 048
  13. DICLOFENAC [Suspect]
     Active Substance: DICLOFENAC
     Dosage: 75 MG, 1-0-1-0, TABLET
     Route: 048
  14. CALCIUM D3 [Concomitant]
     Active Substance: CALCIUM\CHOLECALCIFEROL
     Dosage: 1500 | 400 MG / IU, 1-0-0-0, EFFERVESCENT TABLETS
     Route: 048
  15. MIRTAZAPIN [Concomitant]
     Active Substance: MIRTAZAPINE
     Dosage: 30 MG, 0-0-0-1, TABLET
     Route: 048
  16. TORASEMID [Concomitant]
     Active Substance: TORSEMIDE
     Dosage: 10 MG, 1-0-0-0, TABLET
     Route: 048

REACTIONS (5)
  - Back pain [Unknown]
  - Haemorrhage [Unknown]
  - Shock haemorrhagic [Unknown]
  - Haematochezia [Unknown]
  - Shock [Unknown]
